FAERS Safety Report 5524424-4 (Version None)
Quarter: 2007Q4

REPORT INFORMATION
  Report Type: 
  Country: None (occurrence: None)
  Receive Date: 20071122
  Receipt Date: 20071113
  Transmission Date: 20080405
  Serious: Yes (Other)
  Sender: FDA-Public Use
  Company Number: US-PFIZER INC-2007097384

PATIENT
  Sex: Female
  Weight: 50 kg

DRUGS (9)
  1. CHANTIX [Suspect]
     Indication: SMOKING CESSATION THERAPY
  2. CEPHALEXIN [Interacting]
     Indication: PROPHYLAXIS
     Dosage: TEXT:500MG BID EVERY DAY TDD:100MG
  3. PROPOXYPHENE NAPSYLATE [Interacting]
     Indication: PAIN
     Dosage: TEXT:QID EVERY DAY
  4. MONTELUKAST SODIUM [Concomitant]
     Indication: HYPERSENSITIVITY
     Dosage: TEXT:10MG
  5. TOPAMAX [Concomitant]
     Indication: MIGRAINE
  6. ALL OTHER THERAPEUTIC PRODUCTS [Concomitant]
  7. VERAMYST [Concomitant]
     Indication: HYPERSENSITIVITY
     Dosage: TEXT:IN MORNINGS
  8. BUTALBITAL [Concomitant]
     Indication: MIGRAINE
  9. AMBIEN [Concomitant]
     Indication: SLEEP DISORDER
     Dosage: FREQ:AS NEEDED

REACTIONS (5)
  - CONTUSION [None]
  - DRUG INTERACTION [None]
  - ELBOW DEFORMITY [None]
  - FALL [None]
  - PAIN [None]
